FAERS Safety Report 8373527-8 (Version None)
Quarter: 2012Q2

REPORT INFORMATION
  Report Type: 
  Country: None (occurrence: None)
  Receive Date: 20120521
  Receipt Date: 20110726
  Transmission Date: 20120825
  Serious: No
  Sender: FDA-Public Use
  Company Number: US-TEVA-2011003903

PATIENT
  Sex: Male
  Weight: 73.548 kg

DRUGS (2)
  1. TREANDA [Suspect]
     Indication: CHRONIC LYMPHOCYTIC LEUKAEMIA
     Route: 042
     Dates: start: 20110512, end: 20110701
  2. RITUXAN [Concomitant]

REACTIONS (3)
  - FATIGUE [None]
  - RASH PAPULAR [None]
  - PRURITUS [None]
